FAERS Safety Report 14838432 (Version 5)
Quarter: 2019Q1

REPORT INFORMATION
  Report Type: Report from Study
  Country: US (occurrence: US)
  Receive Date: 20180502
  Receipt Date: 20190320
  Transmission Date: 20190417
  Serious: No
  Sender: FDA-Public Use
  Company Number: PHEH2018US015990

PATIENT
  Sex: Female

DRUGS (1)
  1. TRAVATAN Z [Suspect]
     Active Substance: TRAVOPROST
     Indication: PRODUCT USED FOR UNKNOWN INDICATION
     Route: 047

REACTIONS (7)
  - Accidental exposure to product [Unknown]
  - Influenza [Unknown]
  - Visual impairment [Unknown]
  - Product dropper issue [Unknown]
  - Hypoacusis [Unknown]
  - Cough [Unknown]
  - General physical health deterioration [Unknown]
